FAERS Safety Report 16651847 (Version 2)
Quarter: 2019Q3

REPORT INFORMATION
  Report Type: Spontaneous
  Country: JP (occurrence: JP)
  Receive Date: 20190731
  Receipt Date: 20190808
  Transmission Date: 20191004
  Serious: Yes (Hospitalization, Disabling, Other)
  Sender: FDA-Public Use
  Company Number: JP-BRISTOL-MYERS SQUIBB COMPANY-BMS-2019-052435

PATIENT
  Age: 67 Year
  Sex: Male
  Weight: 54 kg

DRUGS (4)
  1. OPDIVO [Suspect]
     Active Substance: NIVOLUMAB
     Indication: GASTRIC CANCER
     Dosage: 240 MG
     Route: 041
     Dates: start: 20190225, end: 20190520
  2. E KEPPRA [Concomitant]
     Active Substance: LEVETIRACETAM
     Indication: PRODUCT USED FOR UNKNOWN INDICATION
     Dosage: UNK
     Route: 065
  3. NORVASC [Concomitant]
     Active Substance: AMLODIPINE BESYLATE
     Indication: HYPERTENSION
     Dosage: 2.5 MILLIGRAM, QD
     Route: 048
     Dates: start: 20190225
  4. TEGRETOL [Concomitant]
     Active Substance: CARBAMAZEPINE
     Indication: METASTASES TO CENTRAL NERVOUS SYSTEM
     Dosage: 100 MILLIGRAM, Q12H
     Route: 048
     Dates: start: 20190401

REACTIONS (2)
  - Adrenal insufficiency [Recovered/Resolved with Sequelae]
  - Latent autoimmune diabetes in adults [Not Recovered/Not Resolved]

NARRATIVE: CASE EVENT DATE: 20190527
